FAERS Safety Report 23961281 (Version 2)
Quarter: 2024Q4

REPORT INFORMATION
  Report Type: Spontaneous
  Country: BG (occurrence: BG)
  Receive Date: 20240611
  Receipt Date: 20241212
  Transmission Date: 20250114
  Serious: Yes (Hospitalization, Other)
  Sender: JUBILANT
  Company Number: BG-MLMSERVICE-20240429-PI026289-00176-1

PATIENT
  Age: 75 Year
  Sex: Male

DRUGS (4)
  1. VALSARTAN [Suspect]
     Active Substance: VALSARTAN
     Indication: Hypertension
     Dosage: 160 MG, ONCE PER DAY, DAILY IN THE MORNING (IN THE SUMMER SEASON)
  2. HYDROCHLOROTHIAZIDE\VALSARTAN [Suspect]
     Active Substance: HYDROCHLOROTHIAZIDE\VALSARTAN
     Indication: Hypertension
     Dosage: 1 DOSAGE FORM, ONCE PER DAY, ONCE IN THE MORNING FOR THE PAST 10 YEARS
  3. BISOPROLOL FUMARATE [Suspect]
     Active Substance: BISOPROLOL FUMARATE
     Indication: Hypertension
     Dosage: UNK UNK, 2 TIMES PER DAY,HALF A TABLET ,REGIMEN HE HAS FOLLOWED FOR THE PAST 15 YEARS.
  4. ASPIRIN [Concomitant]
     Active Substance: ASPIRIN
     Indication: Product used for unknown indication
     Dosage: 100 MG, ONCE PER DAY, ONCE AT NIGHT

REACTIONS (1)
  - Nodular melanoma [Unknown]
